FAERS Safety Report 6299258-6 (Version None)
Quarter: 2009Q3

REPORT INFORMATION
  Report Type: 
  Country: None (occurrence: None)
  Receive Date: 20090803
  Receipt Date: 20090715
  Transmission Date: 20100115
  Serious: Yes (Hospitalization)
  Sender: FDA-Public Use
  Company Number: 2008AL011326

PATIENT
  Age: 72 Year
  Sex: Female

DRUGS (77)
  1. DIGOXIN [Suspect]
     Indication: CARDIAC OPERATION
     Dosage: 0.25MG, DAILY, PO
     Route: 048
  2. AMLODIPINE [Concomitant]
  3. ZOCOR [Concomitant]
  4. CYMBALTA [Concomitant]
  5. METANX [Concomitant]
  6. CELEBREX [Concomitant]
  7. FERROUS SULFATE TAB [Concomitant]
  8. CYANOCOBALAMIN [Concomitant]
  9. DETROL [Concomitant]
  10. MEGACE [Concomitant]
  11. COLACE [Concomitant]
  12. ARICEPT [Concomitant]
  13. ASPIRIN [Concomitant]
  14. RANITIDINE [Concomitant]
  15. TRIAMTERENE [Concomitant]
  16. PLAVIX [Concomitant]
  17. ZETIA [Concomitant]
  18. PROCTOSOL [Concomitant]
  19. TRICOR [Concomitant]
  20. PROPOXYPHENE HCL CAP [Concomitant]
  21. ZYMAR [Concomitant]
  22. CLOPIDOGREL [Concomitant]
  23. LORAZEPAM [Concomitant]
  24. ZYRTEC [Concomitant]
  25. PREDNISOLONE [Concomitant]
  26. MEGESTROL ACETATE [Concomitant]
  27. SIMVASTATIN [Concomitant]
  28. CIPROFLOXACIN [Concomitant]
  29. HYDROCORTISONE [Concomitant]
  30. AMOXICILLIN [Concomitant]
  31. PREVACID [Concomitant]
  32. BUTALBITAL [Concomitant]
  33. PAXIL [Concomitant]
  34. LUNESTA [Concomitant]
  35. ALPRAZOLAM [Concomitant]
  36. ZOLOFT [Concomitant]
  37. NIRAVAM [Concomitant]
  38. TRAMADOL [Concomitant]
  39. HYDROCODONE [Concomitant]
  40. BIDEX [Concomitant]
  41. HYOSCYAMINE [Concomitant]
  42. AMBIENT [Concomitant]
  43. NAPROXEN [Concomitant]
  44. INDOMETHACIN [Concomitant]
  45. NULEV [Concomitant]
  46. ULTRACET [Concomitant]
  47. POTASSIUM CHLORIDE [Concomitant]
  48. ALLEGRA [Concomitant]
  49. LESCOL [Concomitant]
  50. Q-TUSSIN [Concomitant]
  51. CHLORZOXAZONE [Concomitant]
  52. PREMARIN [Concomitant]
  53. SONATA [Concomitant]
  54. GENTAMICIN [Concomitant]
  55. LEVAQUIN [Concomitant]
  56. ZITHROMAX [Concomitant]
  57. BUSPIRONE HCL [Concomitant]
  58. CEPHALEXIN [Concomitant]
  59. BIAXIN [Concomitant]
  60. DARVOCET [Concomitant]
  61. OXYCODONE [Concomitant]
  62. AMIODARONE HCL [Concomitant]
  63. FLORA-Q [Concomitant]
  64. MEGESTROL ACETATE [Concomitant]
  65. BACTROBAN [Concomitant]
  66. METANX [Concomitant]
  67. PAROXETINE [Concomitant]
  68. LISINOPRIL [Concomitant]
  69. METOCLOPRAMIDE [Concomitant]
  70. METOPROLOL [Concomitant]
  71. NYSTATIN [Concomitant]
  72. HALOPERIDOL [Concomitant]
  73. BENZONATATE [Concomitant]
  74. FEXOFENADINE [Concomitant]
  75. IBUPROFEN [Concomitant]
  76. ATENOLOL [Concomitant]
  77. SINGULAIR [Concomitant]

REACTIONS (18)
  - ANHEDONIA [None]
  - ANXIETY [None]
  - CARDIAC PACEMAKER INSERTION [None]
  - CATHETER SITE INFECTION [None]
  - CONDITION AGGRAVATED [None]
  - CONFUSIONAL STATE [None]
  - DECREASED APPETITE [None]
  - DIZZINESS [None]
  - ECONOMIC PROBLEM [None]
  - FAILURE TO THRIVE [None]
  - FATIGUE [None]
  - MEMORY IMPAIRMENT [None]
  - MULTIPLE INJURIES [None]
  - NAUSEA [None]
  - PAIN [None]
  - SYNCOPE [None]
  - THERAPEUTIC AGENT TOXICITY [None]
  - VOMITING [None]
